FAERS Safety Report 12677766 (Version 1)
Quarter: 2016Q3

REPORT INFORMATION
  Report Type: Spontaneous
  Country: US (occurrence: US)
  Receive Date: 20160823
  Receipt Date: 20160823
  Transmission Date: 20161109
  Serious: No
  Sender: FDA-Public Use
  Company Number: US-FRI-1000084331

PATIENT
  Sex: Female

DRUGS (7)
  1. NAVANE [Concomitant]
     Active Substance: THIOTHIXENE
  2. SAPHRIS [Suspect]
     Active Substance: ASENAPINE MALEATE
     Indication: BIPOLAR DISORDER
     Dosage: 20 MG
     Route: 060
     Dates: end: 20160429
  3. GABAPENTIN. [Concomitant]
     Active Substance: GABAPENTIN
  4. ZOCOR [Concomitant]
     Active Substance: SIMVASTATIN
  5. COGENTIN [Concomitant]
     Active Substance: BENZTROPINE MESYLATE
  6. XANAX [Concomitant]
     Active Substance: ALPRAZOLAM
  7. AMBIEN [Concomitant]
     Active Substance: ZOLPIDEM TARTRATE

REACTIONS (2)
  - Tooth erosion [Unknown]
  - Tooth injury [Unknown]
